FAERS Safety Report 6278235-5 (Version None)
Quarter: 2009Q3

REPORT INFORMATION
  Report Type: 
  Country: None (occurrence: None)
  Receive Date: 20090722
  Receipt Date: 20090710
  Transmission Date: 20100115
  Serious: Yes (Hospitalization)
  Sender: FDA-Public Use
  Company Number: FR-ELI_LILLY_AND_COMPANY-FR200907002965

PATIENT
  Sex: Male

DRUGS (14)
  1. PEMETREXED [Suspect]
     Indication: NON-SMALL CELL LUNG CANCER
     Route: 042
  2. GEMCITABINE HCL [Suspect]
     Indication: NON-SMALL CELL LUNG CANCER
  3. CISPLATIN [Suspect]
     Indication: NON-SMALL CELL LUNG CANCER
  4. FOLIC ACID [Concomitant]
     Indication: VITAMIN SUPPLEMENTATION
     Dosage: 1 TAB, DAILY (1/D), IN MORNING
  5. VITAMIN B-12 [Concomitant]
     Indication: VITAMIN SUPPLEMENTATION
  6. DEXAMETHASONE [Concomitant]
     Indication: PROPHYLAXIS
  7. ATENOLOL [Concomitant]
     Dosage: 100 MG, DAILY (1/D), IN MORNING
  8. KARDEGIC [Concomitant]
     Dosage: 75 MG, DAILY (1/D), AT MIDDAY
  9. TAHOR [Concomitant]
     Dosage: 40 MG, DAILY (1/D), IN EVENING
  10. PLAVIX [Concomitant]
  11. COAPROVEL [Concomitant]
  12. BUFLOMEDIL [Concomitant]
     Dosage: 150 MG, 3/D, 2 IN AM, 1 IN EVE
  13. PANTOPRAZOLE SODIUM [Concomitant]
     Dosage: 20 MG, DAILY (1/D), IN EVENING
  14. POLYETHYLENE GLYCOL [Concomitant]
     Dosage: UNK, 2/D, 1 IN AM, 1 IN EVE

REACTIONS (3)
  - PULMONARY EMBOLISM [None]
  - RENAL FAILURE ACUTE [None]
  - SEPSIS [None]
